FAERS Safety Report 7458584-5 (Version None)
Quarter: 2011Q2

REPORT INFORMATION
  Report Type: 
  Country: None (occurrence: None)
  Receive Date: 20110504
  Receipt Date: 20110428
  Transmission Date: 20111010
  Serious: Yes (Disabling)
  Sender: FDA-Public Use
  Company Number: GB-PFIZER INC-GB-WYE-G06778510

PATIENT
  Age: 32 Year
  Sex: Male
  Weight: 97 kg

DRUGS (2)
  1. EFFEXOR XR [Suspect]
     Indication: DEPRESSION
     Dosage: 37.5 MG, 1X/DAY AT NIGHT
     Route: 048
     Dates: start: 20071018, end: 20100127
  2. EFFEXOR XR [Suspect]
     Indication: SUICIDAL IDEATION

REACTIONS (38)
  - ANXIETY [None]
  - DIZZINESS [None]
  - NAUSEA [None]
  - FATIGUE [None]
  - ASTHENIA [None]
  - INFERIORITY COMPLEX [None]
  - WEIGHT INCREASED [None]
  - INSOMNIA [None]
  - STRESS [None]
  - BLOOD CHOLESTEROL INCREASED [None]
  - PERSONALITY CHANGE DUE TO A GENERAL MEDICAL CONDITION [None]
  - PAIN [None]
  - CRYING [None]
  - FOOD CRAVING [None]
  - UNEVALUABLE EVENT [None]
  - DEPRESSED MOOD [None]
  - HEADACHE [None]
  - ANGER [None]
  - AGITATION [None]
  - COMPULSIVE SHOPPING [None]
  - SEXUAL DYSFUNCTION [None]
  - WEIGHT DECREASED [None]
  - MALAISE [None]
  - DISTURBANCE IN ATTENTION [None]
  - SKIN DISCOLOURATION [None]
  - INFLUENZA LIKE ILLNESS [None]
  - DIARRHOEA [None]
  - FEELING OF BODY TEMPERATURE CHANGE [None]
  - HYPERHIDROSIS [None]
  - EAR DISCOMFORT [None]
  - DRUG WITHDRAWAL SYNDROME [None]
  - VOMITING [None]
  - CHILLS [None]
  - MEMORY IMPAIRMENT [None]
  - HYPERACUSIS [None]
  - TREMOR [None]
  - PARAESTHESIA [None]
  - DEPRESSION [None]
